FAERS Safety Report 25278379 (Version 1)
Quarter: 2025Q2

REPORT INFORMATION
  Report Type: Spontaneous
  Country: IT (occurrence: IT)
  Receive Date: 20250507
  Receipt Date: 20250507
  Transmission Date: 20250717
  Serious: Yes (Other)
  Sender: MYLAN
  Company Number: IT-MYLANLABS-2025M1038612

PATIENT
  Age: 26 Year
  Sex: Male
  Weight: 77 kg

DRUGS (56)
  1. AMLODIPINE [Suspect]
     Active Substance: AMLODIPINE BESYLATE
     Indication: Hypertension
     Dosage: 10 MILLIGRAM, AM
     Dates: start: 2014
  2. AMLODIPINE [Suspect]
     Active Substance: AMLODIPINE BESYLATE
     Dosage: 10 MILLIGRAM, AM
     Route: 065
     Dates: start: 2014
  3. AMLODIPINE [Suspect]
     Active Substance: AMLODIPINE BESYLATE
     Dosage: 10 MILLIGRAM, AM
     Route: 065
     Dates: start: 2014
  4. AMLODIPINE [Suspect]
     Active Substance: AMLODIPINE BESYLATE
     Dosage: 10 MILLIGRAM, AM
     Dates: start: 2014
  5. LERCANIDIPINE [Suspect]
     Active Substance: LERCANIDIPINE
     Indication: Hypertension
  6. LERCANIDIPINE [Suspect]
     Active Substance: LERCANIDIPINE
     Route: 065
  7. LERCANIDIPINE [Suspect]
     Active Substance: LERCANIDIPINE
     Route: 065
  8. LERCANIDIPINE [Suspect]
     Active Substance: LERCANIDIPINE
  9. LISINOPRIL [Suspect]
     Active Substance: LISINOPRIL
     Indication: Hypertension
  10. LISINOPRIL [Suspect]
     Active Substance: LISINOPRIL
     Route: 065
  11. LISINOPRIL [Suspect]
     Active Substance: LISINOPRIL
     Route: 065
  12. LISINOPRIL [Suspect]
     Active Substance: LISINOPRIL
  13. INDAPAMIDE [Suspect]
     Active Substance: INDAPAMIDE
     Indication: Hypertension
  14. INDAPAMIDE [Suspect]
     Active Substance: INDAPAMIDE
     Route: 065
  15. INDAPAMIDE [Suspect]
     Active Substance: INDAPAMIDE
     Route: 065
  16. INDAPAMIDE [Suspect]
     Active Substance: INDAPAMIDE
  17. CANRENONE [Suspect]
     Active Substance: CANRENONE
     Indication: Hypertension
  18. CANRENONE [Suspect]
     Active Substance: CANRENONE
  19. CANRENONE [Suspect]
     Active Substance: CANRENONE
     Route: 065
  20. CANRENONE [Suspect]
     Active Substance: CANRENONE
     Route: 065
  21. CANRENONE [Suspect]
     Active Substance: CANRENONE
     Dosage: 200 MILLIGRAM, AM; IN THE MORNING
     Dates: start: 2014
  22. CANRENONE [Suspect]
     Active Substance: CANRENONE
     Dosage: 200 MILLIGRAM, AM; IN THE MORNING
     Dates: start: 2014
  23. CANRENONE [Suspect]
     Active Substance: CANRENONE
     Dosage: 200 MILLIGRAM, AM; IN THE MORNING
     Route: 065
     Dates: start: 2014
  24. CANRENONE [Suspect]
     Active Substance: CANRENONE
     Dosage: 200 MILLIGRAM, AM; IN THE MORNING
     Route: 065
     Dates: start: 2014
  25. CANRENONE [Suspect]
     Active Substance: CANRENONE
     Dosage: 100 MILLIGRAM, PM; IN THE AFTERNOON
     Dates: start: 2014
  26. CANRENONE [Suspect]
     Active Substance: CANRENONE
     Dosage: 100 MILLIGRAM, PM; IN THE AFTERNOON
     Route: 065
     Dates: start: 2014
  27. CANRENONE [Suspect]
     Active Substance: CANRENONE
     Dosage: 100 MILLIGRAM, PM; IN THE AFTERNOON
     Dates: start: 2014
  28. CANRENONE [Suspect]
     Active Substance: CANRENONE
     Dosage: 100 MILLIGRAM, PM; IN THE AFTERNOON
     Route: 065
     Dates: start: 2014
  29. CLONIDINE [Suspect]
     Active Substance: CLONIDINE
     Indication: Hypertension
  30. CLONIDINE [Suspect]
     Active Substance: CLONIDINE
     Route: 065
  31. CLONIDINE [Suspect]
     Active Substance: CLONIDINE
     Route: 065
  32. CLONIDINE [Suspect]
     Active Substance: CLONIDINE
  33. CARBAMAZEPINE [Interacting]
     Active Substance: CARBAMAZEPINE
     Indication: Partial seizures
  34. CARBAMAZEPINE [Interacting]
     Active Substance: CARBAMAZEPINE
     Route: 065
  35. CARBAMAZEPINE [Interacting]
     Active Substance: CARBAMAZEPINE
     Route: 065
  36. CARBAMAZEPINE [Interacting]
     Active Substance: CARBAMAZEPINE
  37. VALPROIC ACID [Interacting]
     Active Substance: VALPROIC ACID
     Indication: Partial seizures
  38. VALPROIC ACID [Interacting]
     Active Substance: VALPROIC ACID
     Route: 065
  39. VALPROIC ACID [Interacting]
     Active Substance: VALPROIC ACID
     Route: 065
  40. VALPROIC ACID [Interacting]
     Active Substance: VALPROIC ACID
  41. DEXAMETHASONE [Interacting]
     Active Substance: DEXAMETHASONE
     Indication: Adrenogenital syndrome
  42. DEXAMETHASONE [Interacting]
     Active Substance: DEXAMETHASONE
  43. DEXAMETHASONE [Interacting]
     Active Substance: DEXAMETHASONE
     Route: 065
  44. DEXAMETHASONE [Interacting]
     Active Substance: DEXAMETHASONE
     Route: 065
  45. DEXAMETHASONE [Interacting]
     Active Substance: DEXAMETHASONE
     Dosage: 0.5 MILLIGRAM, QD; AT BEDTIME
     Dates: start: 2014, end: 2014
  46. DEXAMETHASONE [Interacting]
     Active Substance: DEXAMETHASONE
     Dosage: 0.5 MILLIGRAM, QD; AT BEDTIME
     Dates: start: 2014, end: 2014
  47. DEXAMETHASONE [Interacting]
     Active Substance: DEXAMETHASONE
     Dosage: 0.5 MILLIGRAM, QD; AT BEDTIME
     Route: 065
     Dates: start: 2014, end: 2014
  48. DEXAMETHASONE [Interacting]
     Active Substance: DEXAMETHASONE
     Dosage: 0.5 MILLIGRAM, QD; AT BEDTIME
     Route: 065
     Dates: start: 2014, end: 2014
  49. DEXAMETHASONE [Interacting]
     Active Substance: DEXAMETHASONE
     Dosage: 0.75 MILLIGRAM, QD; AT BEDTIME
     Dates: start: 2014, end: 2014
  50. DEXAMETHASONE [Interacting]
     Active Substance: DEXAMETHASONE
     Dosage: 0.75 MILLIGRAM, QD; AT BEDTIME
     Route: 065
     Dates: start: 2014, end: 2014
  51. DEXAMETHASONE [Interacting]
     Active Substance: DEXAMETHASONE
     Dosage: 0.75 MILLIGRAM, QD; AT BEDTIME
     Dates: start: 2014, end: 2014
  52. DEXAMETHASONE [Interacting]
     Active Substance: DEXAMETHASONE
     Dosage: 0.75 MILLIGRAM, QD; AT BEDTIME
     Route: 065
     Dates: start: 2014, end: 2014
  53. PERAMPANEL [Concomitant]
     Active Substance: PERAMPANEL
     Indication: Partial seizures
  54. PERAMPANEL [Concomitant]
     Active Substance: PERAMPANEL
     Route: 065
  55. PERAMPANEL [Concomitant]
     Active Substance: PERAMPANEL
     Route: 065
  56. PERAMPANEL [Concomitant]
     Active Substance: PERAMPANEL

REACTIONS (1)
  - Drug ineffective [Unknown]

NARRATIVE: CASE EVENT DATE: 20140101
